FAERS Safety Report 8531862-4 (Version None)
Quarter: 2012Q3

REPORT INFORMATION
  Report Type: 
  Country: None (occurrence: None)
  Receive Date: 20120723
  Receipt Date: 20120711
  Transmission Date: 20120928
  Serious: Yes (Other)
  Sender: FDA-Public Use
  Company Number: US-MYLANLABS-2012S1013998

PATIENT
  Age: 50 Year
  Sex: Female
  Weight: 61.24 kg

DRUGS (8)
  1. FENTANYL-100 [Suspect]
     Indication: FIBROMYALGIA
     Dosage: CHANGE Q72HR
     Route: 062
     Dates: start: 20110101, end: 20120601
  2. CYMBALTA [Concomitant]
     Indication: DEPRESSION
     Route: 048
  3. ALPRAZOLAM [Concomitant]
     Indication: ANXIETY
     Route: 048
  4. FENTANYL-100 [Suspect]
     Indication: PAIN
     Dosage: CHANGE Q72HR
     Route: 062
     Dates: start: 20110101, end: 20120601
  5. FENTANYL-100 [Suspect]
     Dosage: CHANGE Q72HR
     Route: 062
     Dates: start: 20120601, end: 20120601
  6. FENTANYL-100 [Suspect]
     Dosage: CHANGE Q72HR
     Route: 062
     Dates: start: 20120601
  7. FENTANYL-100 [Suspect]
     Dosage: CHANGE Q72HR
     Route: 062
     Dates: start: 20120601
  8. FENTANYL-100 [Suspect]
     Dosage: CHANGE Q72HR
     Route: 062
     Dates: start: 20120601, end: 20120601

REACTIONS (5)
  - PAIN [None]
  - DRUG EFFECT DECREASED [None]
  - DEPRESSION [None]
  - CRYING [None]
  - DRUG WITHDRAWAL SYNDROME [None]
